FAERS Safety Report 14977029 (Version 1)
Quarter: 2018Q2

REPORT INFORMATION
  Report Type: Spontaneous
  Country: US (occurrence: US)
  Receive Date: 20180606
  Receipt Date: 20180606
  Transmission Date: 20180711
  Serious: No
  Sender: FDA-Public Use
  Company Number: US-ASTRAZENECA-2018SE71066

PATIENT
  Sex: Male

DRUGS (1)
  1. BYDUREON BCISE [Suspect]
     Active Substance: EXENATIDE
     Indication: GLYCOSYLATED HAEMOGLOBIN INCREASED
     Route: 030
     Dates: start: 20180517

REACTIONS (6)
  - Gait inability [Unknown]
  - Off label use [Unknown]
  - Injection site discolouration [Unknown]
  - Injection site pain [Unknown]
  - Product use issue [Unknown]
  - Injection site bruising [Unknown]
